FAERS Safety Report 16257482 (Version 1)
Quarter: 2019Q2

REPORT INFORMATION
  Report Type: Spontaneous
  Country: DE (occurrence: DE)
  Receive Date: 20190430
  Receipt Date: 20190430
  Transmission Date: 20190711
  Serious: Yes (Death, Life-Threatening, Hospitalization)
  Sender: FDA-Public Use
  Company Number: DE-MYLANLABS-MK-6035775

PATIENT
  Age: 78 Year
  Sex: Female
  Weight: 80 kg

DRUGS (4)
  1. BENAZEPRIL [Suspect]
     Active Substance: BENAZEPRIL HYDROCHLORIDE
     Indication: PRODUCT USED FOR UNKNOWN INDICATION
     Dosage: 250 MILLIGRAM, TOTAL
     Route: 048
  2. MIRTAZAPINE. [Suspect]
     Active Substance: MIRTAZAPINE
     Indication: PRODUCT USED FOR UNKNOWN INDICATION
     Dosage: 600 MILLIGRAM, TOTAL
     Route: 048
  3. AMLODIPINE [Suspect]
     Active Substance: AMLODIPINE BESYLATE
     Indication: PRODUCT USED FOR UNKNOWN INDICATION
     Dosage: 430 MILLIGRAM, TOTAL
     Route: 048
  4. ISOSORBIDE MONONITRATE. [Suspect]
     Active Substance: ISOSORBIDE MONONITRATE
     Indication: PRODUCT USED FOR UNKNOWN INDICATION
     Dosage: 2 GRAM, TOTAL
     Route: 048

REACTIONS (7)
  - Overdose [Recovering/Resolving]
  - Vasodilatation [Fatal]
  - Cardiac failure [Fatal]
  - Completed suicide [Fatal]
  - Cardiovascular insufficiency [Recovering/Resolving]
  - Intestinal ischaemia [Fatal]
  - Shock [Fatal]
